FAERS Safety Report 4939527-2 (Version None)
Quarter: 2006Q1

REPORT INFORMATION
  Report Type: 
  Country: None (occurrence: None)
  Receive Date: 20060310
  Receipt Date: 20060223
  Transmission Date: 20060701
  Serious: Yes (Other)
  Sender: FDA-Public Use
  Company Number: FRWYE425023FEB06

PATIENT
  Age: 77 Year
  Sex: Female

DRUGS (4)
  1. ENBREL [Suspect]
     Indication: PSORIASIS
     Route: 058
     Dates: start: 20060119, end: 20060209
  2. ATARAX [Concomitant]
     Dosage: UNKNONW
  3. BENZOATE [Concomitant]
     Dosage: UNKNOWN
  4. PROMETHAZINE HCL [Concomitant]

REACTIONS (4)
  - CONDITION AGGRAVATED [None]
  - DRUG INEFFECTIVE [None]
  - LEUKOCYTOCLASTIC VASCULITIS [None]
  - PSORIASIS [None]
